FAERS Safety Report 8203726-7 (Version None)
Quarter: 2012Q1

REPORT INFORMATION
  Report Type: 
  Country: None (occurrence: None)
  Receive Date: 20120308
  Receipt Date: 20120228
  Transmission Date: 20120608
  Serious: Yes (Hospitalization)
  Sender: FDA-Public Use
  Company Number: TCI2012A00979

PATIENT
  Age: 49 Month
  Sex: Male

DRUGS (5)
  1. BASEN (VOGLIBOSE) [Concomitant]
  2. MICARDIS [Concomitant]
  3. AMARYL [Concomitant]
  4. ACTOS [Suspect]
     Indication: DIABETES MELLITUS
     Dosage: 15 MG (15 MG, 1 D)   30 MG (30 MG, 1 D)
     Route: 048
     Dates: start: 20071001, end: 20120217
  5. ACTOS [Suspect]
     Indication: DIABETES MELLITUS
     Dosage: 15 MG (15 MG, 1 D)   30 MG (30 MG, 1 D)
     Route: 048
     Dates: start: 20070501, end: 20071001

REACTIONS (1)
  - BLADDER CANCER [None]
